FAERS Safety Report 4766745-9 (Version None)
Quarter: 2005Q3

REPORT INFORMATION
  Report Type: 
  Country: None (occurrence: None)
  Receive Date: 20050912
  Receipt Date: 20050830
  Transmission Date: 20060218
  Serious: Yes (Other)
  Sender: FDA-Public Use
  Company Number: 2005112147

PATIENT
  Age: 52 Year
  Sex: Female
  Weight: 97.5234 kg

DRUGS (10)
  1. NEURONTIN [Suspect]
     Indication: PAIN
     Dosage: 300 MG, 4 IN 1 D, ORAL
     Route: 048
  2. NORVASC [Suspect]
     Indication: HYPERTENSION
     Dosage: 5 MG (5 MG, 1 IN 1 D)
     Dates: start: 20050101
  3. CYMBALTA [Concomitant]
  4. ADDERALL XR (AMFETAMINE ASPARTATE, AMFETAMINE SULFATE, DEXAMFETAMINE S [Concomitant]
  5. PERCOCET [Concomitant]
  6. VALIUM [Concomitant]
  7. DEXEDRINE   MEDEVA  (DEXAMFETAMINE SULFATE) [Concomitant]
  8. NEXIUM [Concomitant]
  9. BENZONATATE [Concomitant]
  10. ALBUTEROL [Concomitant]

REACTIONS (6)
  - DEVICE FAILURE [None]
  - ECONOMIC PROBLEM [None]
  - HYPERTENSION [None]
  - IRRITABLE BOWEL SYNDROME [None]
  - MENOPAUSE [None]
  - WEIGHT DECREASED [None]
